FAERS Safety Report 11460177 (Version 1)
Quarter: 2015Q3

REPORT INFORMATION
  Report Type: Spontaneous
  Country: GB (occurrence: GB)
  Receive Date: 20150904
  Receipt Date: 20150904
  Transmission Date: 20151125
  Serious: Yes (Other)
  Sender: FDA-Public Use
  Company Number: GB-TEVA-589546ACC

PATIENT
  Age: 81 Year
  Sex: Female
  Weight: 45.36 kg

DRUGS (2)
  1. AMOXICILLINE [Suspect]
     Active Substance: AMOXICILLIN
     Indication: COUGH
     Dosage: 750 MILLIGRAM DAILY;
     Route: 048
     Dates: start: 20150527
  2. DOXYCYCLINE. [Suspect]
     Active Substance: DOXYCYCLINE
     Indication: COUGH
     Dosage: TAKE TWO DAILY FIRST DAY THEN ONE.
     Route: 048
     Dates: start: 20150602

REACTIONS (2)
  - Dizziness [Recovered/Resolved]
  - Malaise [Recovered/Resolved]
